FAERS Safety Report 5978052-7 (Version None)
Quarter: 2008Q4

REPORT INFORMATION
  Report Type: 
  Country: None (occurrence: None)
  Receive Date: 20081203
  Receipt Date: 20081125
  Transmission Date: 20090506
  Serious: Yes (Other)
  Sender: FDA-Public Use
  Company Number: US-MERCK-0705USA05567

PATIENT
  Age: 42 Year
  Sex: Female
  Weight: 58 kg

DRUGS (3)
  1. FOSAMAX [Suspect]
     Indication: OSTEOPOROSIS
     Route: 048
     Dates: start: 19980101, end: 20031105
  2. FOSAMAX [Suspect]
     Route: 048
     Dates: start: 20031106, end: 20060501
  3. PREMARIN [Concomitant]
     Indication: HORMONE REPLACEMENT THERAPY
     Route: 065
     Dates: start: 19980101, end: 19990101

REACTIONS (22)
  - ABSCESS [None]
  - ALVEOLAR OSTEITIS [None]
  - ARTHRALGIA [None]
  - DEAFNESS [None]
  - EAR DISORDER [None]
  - EUSTACHIAN TUBE DYSFUNCTION [None]
  - FIBROMYALGIA [None]
  - FISTULA [None]
  - HORMONE LEVEL ABNORMAL [None]
  - HYPOGONADISM [None]
  - HYPOTHYROIDISM [None]
  - INTERVERTEBRAL DISC DEGENERATION [None]
  - MASTOID DISORDER [None]
  - MASTOIDITIS [None]
  - MIGRAINE [None]
  - OTITIS EXTERNA [None]
  - OTITIS MEDIA [None]
  - PAIN IN JAW [None]
  - SPINAL OSTEOARTHRITIS [None]
  - TEMPOROMANDIBULAR JOINT SYNDROME [None]
  - TOOTH ABSCESS [None]
  - TYMPANIC MEMBRANE PERFORATION [None]
